FAERS Safety Report 5159933-3 (Version None)
Quarter: 2006Q4

REPORT INFORMATION
  Report Type: 
  Country: None (occurrence: None)
  Receive Date: 20061117
  Receipt Date: 20061104
  Transmission Date: 20070319
  Serious: Yes (Other)
  Sender: FDA-Public Use
  Company Number: 2006119567

PATIENT
  Age: 79 Year
  Sex: Female
  Weight: 35.3806 kg

DRUGS (15)
  1. REVATIO [Suspect]
     Indication: PULMONARY HYPERTENSION
     Dosage: 30 MG (10 MG, 3 IN 1 D), ORAL
     Route: 048
     Dates: start: 20060623
  2. AZITHROMYCIN [Suspect]
     Indication: COUGH
     Dosage: 250 MG
     Dates: start: 20060901
  3. SPIRIVA [Concomitant]
  4. FUROSEMIDE [Concomitant]
  5. ENALAPRIL MALEATE [Concomitant]
  6. ALL OTHER THERAPEUTIC PRODUCTS [Concomitant]
  7. MIACALCIN [Concomitant]
  8. PILOCARPINE [Concomitant]
  9. DARVOCET-N 100 [Concomitant]
  10. ALPRAZOLAM [Concomitant]
  11. METOPROLOL SUCCINATE [Concomitant]
  12. ALBUTEROL [Concomitant]
  13. ACTONEL [Concomitant]
  14. SENOKOT [Concomitant]
  15. LORAZEPAM [Concomitant]

REACTIONS (8)
  - BREAST PAIN [None]
  - CONTUSION [None]
  - COUGH [None]
  - CYANOSIS [None]
  - DYSPNOEA [None]
  - LETHARGY [None]
  - RIB FRACTURE [None]
  - STRESS [None]
